FAERS Safety Report 4405783-2 (Version None)
Quarter: 2004Q3

REPORT INFORMATION
  Report Type: 
  Country: None (occurrence: None)
  Receive Date: 20040723
  Receipt Date: 20031210
  Transmission Date: 20050211
  Serious: No
  Sender: FDA-Public Use
  Company Number: US-GLAXOSMITHKLINE-A0442626A

PATIENT
  Age: 53 Year
  Sex: Female

DRUGS (2)
  1. AVANDIA [Suspect]
     Dosage: 1TAB IN THE MORNING
     Route: 048
  2. UNKNOWN MEDICATION [Concomitant]
     Route: 065

REACTIONS (1)
  - BLOOD GLUCOSE DECREASED [None]
